FAERS Safety Report 4276500-4 (Version None)
Quarter: 2004Q1

REPORT INFORMATION
  Report Type: 
  Country: None (occurrence: None)
  Receive Date: 20040120
  Receipt Date: 20040108
  Transmission Date: 20041129
  Serious: Yes (Other)
  Sender: FDA-Public Use
  Company Number: 2004001906

PATIENT
  Age: 44 Year
  Sex: Female
  Weight: 55.7924 kg

DRUGS (1)
  1. NEURONTIN [Suspect]
     Indication: NEUROPATHY PERIPHERAL
     Dosage: 900 MG (TID), ORAL
     Route: 048
     Dates: start: 20031120

REACTIONS (11)
  - AMNESIA [None]
  - ANORGASMIA [None]
  - CAESAREAN SECTION [None]
  - DIZZINESS [None]
  - DRUG EFFECT DECREASED [None]
  - FEELING ABNORMAL [None]
  - MEDICATION ERROR [None]
  - PANIC DISORDER [None]
  - PREGNANCY [None]
  - SEXUAL ABUSE [None]
  - SOMNOLENCE [None]
